FAERS Safety Report 10235988 (Version 1)
Quarter: 2014Q1

REPORT INFORMATION
  Report Type: Spontaneous
  Country: US (occurrence: None)
  Receive Date: 20140306
  Receipt Date: 20140306
  Transmission Date: 20141002
  Serious: Yes (Hospitalization)
  Sender: FDA-Public Use
  Company Number: 163-21880-13044248

PATIENT
  Age: 70 Year
  Sex: Male
  Weight: 93.9 kg

DRUGS (9)
  1. REVLIMIDE(LENALIDOMIDE)(25 MILLIGRAM, CAPSULES) [Suspect]
     Indication: PLASMA CELL MYELOMA
     Dosage: 25 MG, 1 IN 2 D, PO
     Route: 048
     Dates: start: 201007
  2. MILK OF MAGNESIA (MAGNESIUM HYDROXIDE)(UKNOWN) [Concomitant]
  3. ASPIRIN(ACETYLSALICYLIC ACI)(UKNOWN) [Concomitant]
  4. HYDROCODONE(HYDROCODONE)(UKNOWN) [Concomitant]
  5. DIOVAN(DIAVAN)(UKNOWN) [Concomitant]
  6. VELCADE(BORTEZOMBID)(UKNOWN) [Concomitant]
  7. SIMVASTATIN(SIMVASTATIN) [Concomitant]
  8. LEVOTHYRXOINE(LEVOTHYROXINE)(UKNOWN) [Concomitant]
  9. DEXAMETHASONE(DEXAMETHASONE)(UKNOWN) [Concomitant]

REACTIONS (1)
  - Malaise [None]
